FAERS Safety Report 16716112 (Version 1)
Quarter: 2019Q3

REPORT INFORMATION
  Report Type: Report from Study
  Country: US (occurrence: US)
  Receive Date: 20190819
  Receipt Date: 20190819
  Transmission Date: 20191005
  Serious: Yes (Other)
  Sender: FDA-Public Use
  Company Number: US-PFIZER INC-2019351741

PATIENT
  Sex: Female

DRUGS (4)
  1. CRLX101 [Suspect]
     Active Substance: INVESTIGATIONAL PRODUCT
     Indication: NEOPLASM MALIGNANT
     Dosage: 15 MG/M2, CYCLIC (Q2W; PHASE 1)
  2. PACLITAXEL. [Suspect]
     Active Substance: PACLITAXEL
     Indication: NEOPLASM MALIGNANT
     Dosage: 80 MG/M2, WEEKLY (PHASE 1)
  3. PACLITAXEL. [Suspect]
     Active Substance: PACLITAXEL
     Dosage: 80 MG/M2, PHASE 2; 3 WKS ON/1 WK OFF; REPEATED Q 28 DAYS)
  4. CRLX101 [Suspect]
     Active Substance: INVESTIGATIONAL PRODUCT
     Dosage: UNK, Q2W (PHASE 2)

REACTIONS (4)
  - Hypokalaemia [Unknown]
  - Cystitis [Unknown]
  - Urinary tract infection [Unknown]
  - Hypertension [Unknown]
